FAERS Safety Report 11434329 (Version 1)
Quarter: 2015Q3

REPORT INFORMATION
  Report Type: Other
  Country: US (occurrence: US)
  Receive Date: 20150831
  Receipt Date: 20150831
  Transmission Date: 20151125
  Serious: Yes (Hospitalization, Other)
  Sender: FDA-Public Use
  Company Number: US-SHIRE-US201510672

PATIENT
  Age: 45 Year
  Sex: Female
  Weight: 76.19 kg

DRUGS (14)
  1. DIPHENHYDRAMINE. [Concomitant]
     Active Substance: DIPHENHYDRAMINE
     Indication: ANAPHYLACTIC REACTION
     Dosage: 50 MG, AS REQ^D
     Route: 042
     Dates: start: 201502
  2. SODIUM CHLORIDE. [Concomitant]
     Active Substance: SODIUM CHLORIDE
     Indication: CATHETER MANAGEMENT
     Dosage: 0.9 %, OTHER (AS DIRECTED)
     Route: 042
     Dates: start: 20150219
  3. ZANTAC [Concomitant]
     Active Substance: RANITIDINE HYDROCHLORIDE
     Indication: HEREDITARY ANGIOEDEMA
     Dosage: 150 MG, AS REQ^D
     Route: 048
     Dates: start: 20140214
  4. LEXAPRO [Concomitant]
     Active Substance: ESCITALOPRAM OXALATE
     Indication: PRODUCT USED FOR UNKNOWN INDICATION
     Dosage: 10 MG, 1X/DAY:QD
     Route: 048
     Dates: start: 20140214
  5. BERINERT [Concomitant]
     Active Substance: HUMAN C1-ESTERASE INHIBITOR
     Indication: HEREDITARY ANGIOEDEMA
     Dosage: 500 IU, OTHER (AS DIRECTED)
     Route: 042
     Dates: start: 20150219
  6. FIRAZYR [Suspect]
     Active Substance: ICATIBANT ACETATE
     Indication: IDIOPATHIC URTICARIA
  7. KALBITOR [Concomitant]
     Active Substance: ECALLANTIDE
     Indication: HEREDITARY ANGIOEDEMA
     Dosage: 30 MG, OTHER (AS DIRECTED)
     Route: 058
     Dates: start: 20140415
  8. ZITHROMAX [Concomitant]
     Active Substance: AZITHROMYCIN DIHYDRATE
     Indication: HEREDITARY ANGIOEDEMA
     Dosage: 250 MG, 1X/DAY:QD
     Route: 048
     Dates: start: 20150806
  9. DOXYCYCLINE. [Concomitant]
     Active Substance: DOXYCYCLINE
     Indication: HEREDITARY ANGIOEDEMA
     Dosage: 100 MG, 2X/DAY:BID
     Route: 048
     Dates: start: 20140703
  10. FIRAZYR [Suspect]
     Active Substance: ICATIBANT ACETATE
     Indication: HEREDITARY ANGIOEDEMA
     Dosage: 30 MG, AS REQ^D
     Route: 058
  11. FENOFIBRATE. [Concomitant]
     Active Substance: FENOFIBRATE
     Indication: HEREDITARY ANGIOEDEMA
     Dosage: 54 MG, 1X/DAY:QD
     Route: 048
     Dates: start: 20150528
  12. EPIPEN [Concomitant]
     Active Substance: EPINEPHRINE
     Indication: ANAPHYLACTIC REACTION
     Dosage: 0.3 MG, AS REQ^D
     Route: 030
     Dates: start: 20150219
  13. PREDNISONE. [Concomitant]
     Active Substance: PREDNISONE
     Indication: HEREDITARY ANGIOEDEMA
     Dosage: 40 MG, AS REQ^D (AS NEEDED)
     Route: 048
     Dates: start: 20140214
  14. SYNTHROID [Concomitant]
     Active Substance: LEVOTHYROXINE SODIUM
     Indication: HEREDITARY ANGIOEDEMA
     Dosage: 100 ?G, 1X/DAY:QD
     Route: 048
     Dates: start: 20140214

REACTIONS (2)
  - Laryngeal oedema [Not Recovered/Not Resolved]
  - Swelling [Not Recovered/Not Resolved]

NARRATIVE: CASE EVENT DATE: 20150815
